FAERS Safety Report 7622788-9 (Version None)
Quarter: 2011Q3

REPORT INFORMATION
  Report Type: 
  Country: None (occurrence: None)
  Receive Date: 20110719
  Receipt Date: 20110719
  Transmission Date: 20111222
  Serious: Yes (Other)
  Sender: FDA-Public Use
  Company Number: None

PATIENT
  Sex: Female
  Weight: 56.6996 kg

DRUGS (1)
  1. SIMVASTATIN [Suspect]
     Dosage: 20 MG. TAB
     Dates: start: 20060319

REACTIONS (3)
  - DRY SKIN [None]
  - ALOPECIA [None]
  - RASH [None]
